FAERS Safety Report 20622805 (Version 1)
Quarter: 2022Q1

REPORT INFORMATION
  Report Type: Spontaneous
  Country: US (occurrence: US)
  Receive Date: 20220322
  Receipt Date: 20220322
  Transmission Date: 20220423
  Serious: No
  Sender: FDA-Public Use
  Company Number: US-ALLERGAN-2203924US

PATIENT

DRUGS (1)
  1. LATISSE [Suspect]
     Active Substance: BIMATOPROST
     Indication: Hypertrichosis

REACTIONS (4)
  - Eyelid margin crusting [Not Recovered/Not Resolved]
  - Off label use [Unknown]
  - Eye infection [Not Recovered/Not Resolved]
  - Suspected product contamination [Unknown]

NARRATIVE: CASE EVENT DATE: 20220118
